FAERS Safety Report 5294713-X (Version None)
Quarter: 2007Q2

REPORT INFORMATION
  Report Type: 
  Country: None (occurrence: None)
  Receive Date: 20070409
  Receipt Date: 20070409
  Transmission Date: 20071010
  Serious: Yes (Life-Threatening, Hospitalization)
  Sender: FDA-Public Use
  Company Number: None

PATIENT
  Age: 92 Year
  Sex: Female

DRUGS (3)
  1. DIGOXIN [Suspect]
     Indication: ATRIAL FIBRILLATION
     Dosage: 0.25 MG DAILY PO
     Route: 048
     Dates: end: 20070404
  2. BIAXIN [Suspect]
     Indication: LARYNGITIS
     Dosage: 500MG BID PO
     Route: 048
     Dates: start: 20070329, end: 20070404
  3. BIAXIN [Suspect]
     Indication: PNEUMONIA
     Dosage: 500MG BID PO
     Route: 048
     Dates: start: 20070329, end: 20070404

REACTIONS (18)
  - ATRIOVENTRICULAR BLOCK COMPLETE [None]
  - BLOOD CREATININE INCREASED [None]
  - BUNDLE BRANCH BLOCK LEFT [None]
  - BUNDLE BRANCH BLOCK RIGHT [None]
  - DECREASED APPETITE [None]
  - DIZZINESS [None]
  - DYSPNOEA [None]
  - ELECTROCARDIOGRAM ST-T CHANGE [None]
  - HEART RATE DECREASED [None]
  - LARYNGITIS [None]
  - MUSCULOSKELETAL DISCOMFORT [None]
  - NAUSEA [None]
  - NODAL RHYTHM [None]
  - OEDEMA PERIPHERAL [None]
  - PNEUMONIA [None]
  - RHYTHM IDIOVENTRICULAR [None]
  - THERAPEUTIC AGENT TOXICITY [None]
  - THERAPY REGIMEN CHANGED [None]
